FAERS Safety Report 5194512-3 (Version None)
Quarter: 2006Q4

REPORT INFORMATION
  Report Type: 
  Country: None (occurrence: None)
  Receive Date: 20061221
  Receipt Date: 20061219
  Transmission Date: 20070319
  Serious: Yes (Life-Threatening)
  Sender: FDA-Public Use
  Company Number: HQWYE594119DEC06

PATIENT
  Age: 75 Year
  Sex: Female

DRUGS (9)
  1. TRANGOREX (AMIODARONE, TABLET) [Suspect]
     Indication: ATRIAL FIBRILLATION
     Dosage: 200 MG ORAL  A FEW YEARS
     Route: 048
     Dates: end: 20061026
  2. TRANGOREX (AMIODARONE, TABLET) [Suspect]
     Indication: ATRIAL FLUTTER
     Dosage: 200 MG ORAL  A FEW YEARS
     Route: 048
     Dates: end: 20061026
  3. ACENOCOUMAROL (ACENOCOUMAROL) [Suspect]
     Indication: ATRIAL FIBRILLATION
     Dosage: 1 MG ORAL  A FEW YEARS
     Route: 048
     Dates: end: 20061026
  4. ACENOCOUMAROL (ACENOCOUMAROL) [Suspect]
     Indication: ATRIAL FLUTTER
     Dosage: 1 MG ORAL  A FEW YEARS
     Route: 048
     Dates: end: 20061026
  5. CIPROFLOXACIN [Suspect]
     Indication: ABSCESS
     Dosage: 800 MG 2X PER 1 DAY
     Dates: start: 20061010
  6. CIPROFLOXACIN [Suspect]
     Indication: CELLULITIS
     Dosage: 800 MG 2X PER 1 DAY
     Dates: start: 20061010
  7. OMEPRAZOLE [Suspect]
     Indication: PROPHYLAXIS
     Dosage: 20 MG 1X PER 1 DAY ORAL
     Route: 048
  8. TRAMADOL (TRAMADOL) [Concomitant]
  9. LORAZEPAM [Concomitant]

REACTIONS (4)
  - CEREBELLAR HAEMORRHAGE [None]
  - DRUG INTERACTION [None]
  - INTERNATIONAL NORMALISED RATIO INCREASED [None]
  - SUBARACHNOID HAEMORRHAGE [None]
